FAERS Safety Report 5208876-5 (Version None)
Quarter: 2007Q1

REPORT INFORMATION
  Report Type: 
  Country: None (occurrence: None)
  Receive Date: 20070111
  Receipt Date: 20070111
  Transmission Date: 20070707
  Serious: Yes (Life-Threatening, Hospitalization)
  Sender: FDA-Public Use
  Company Number: None

PATIENT
  Age: 63 Year
  Sex: Female
  Weight: 56.6996 kg

DRUGS (2)
  1. IBUPROFEN [Suspect]
     Indication: INFLAMMATION
     Dosage: 800 MG. 3X/DAY ORAL
     Route: 048
     Dates: start: 20060910, end: 20060921
  2. HYDROCODONE/APAP [Concomitant]

REACTIONS (1)
  - DUODENAL ULCER PERFORATION [None]
